FAERS Safety Report 24916271 (Version 1)
Quarter: 2025Q1

REPORT INFORMATION
  Report Type: Report from Study
  Country: DE (occurrence: DE)
  Receive Date: 20250203
  Receipt Date: 20250203
  Transmission Date: 20250408
  Serious: Yes (Other)
  Sender: ABBVIE
  Company Number: DE-SANDOZ-SDZ2024DE071480

PATIENT
  Sex: Female

DRUGS (3)
  1. RINVOQ [Suspect]
     Active Substance: UPADACITINIB
     Indication: Product used for unknown indication
     Dosage: 15 MG, QD (SINCE:22-FEB-2024)
     Route: 048
  2. METHOTREXATE [Suspect]
     Active Substance: METHOTREXATE
     Indication: Product used for unknown indication
     Dosage: 7.5 MG, QW
     Route: 065
  3. HYRIMOZ [Suspect]
     Active Substance: ADALIMUMAB-ADAZ
     Indication: Product used for unknown indication
     Dosage: 40 MG, Q2W, 40 MG/EVERY 2 WEEKS UNTILL 22-FEB
     Route: 065
     Dates: end: 20240222

REACTIONS (1)
  - Polyarthritis [Recovered/Resolved]

NARRATIVE: CASE EVENT DATE: 20240215
